FAERS Safety Report 6692482-X (Version None)
Quarter: 2010Q2

REPORT INFORMATION
  Report Type: 
  Country: None (occurrence: None)
  Receive Date: 20100422
  Receipt Date: 20100420
  Transmission Date: 20101027
  Serious: Yes (Death)
  Sender: FDA-Public Use
  Company Number: A0856080A

PATIENT
  Sex: Female

DRUGS (2)
  1. SERETIDE [Suspect]
     Indication: ASTHMA
     Dosage: 1PUFF TWICE PER DAY
     Route: 055
     Dates: start: 20050101, end: 20100415
  2. BAMIFIX [Concomitant]
     Dosage: 1TAB TWICE PER DAY
     Dates: start: 20090101, end: 20100415

REACTIONS (1)
  - CARDIAC ARREST [None]
